FAERS Safety Report 17614261 (Version 2)
Quarter: 2020Q2

REPORT INFORMATION
  Report Type: Report from Study
  Country: None (occurrence: MX)
  Receive Date: 20200402
  Receipt Date: 20200408
  Transmission Date: 20200713
  Serious: Yes (Disabling)
  Sender: FDA-Public Use
  Company Number: MX-ABBVIE-20K-107-3346466-00

PATIENT
  Age: 41 Year
  Sex: Female
  Weight: 49 kg

DRUGS (7)
  1. HUMIRA [Suspect]
     Active Substance: ADALIMUMAB
     Indication: RHEUMATOID ARTHRITIS
     Route: 058
     Dates: end: 201911
  2. FOLIC ACID. [Concomitant]
     Active Substance: FOLIC ACID
     Indication: RHEUMATOID ARTHRITIS
  3. SULINDAC. [Concomitant]
     Active Substance: SULINDAC
     Indication: RHEUMATOID ARTHRITIS
  4. PREDNISONE. [Concomitant]
     Active Substance: PREDNISONE
     Indication: RHEUMATOID ARTHRITIS
  5. METHOTREXATE. [Concomitant]
     Active Substance: METHOTREXATE
     Indication: RHEUMATOID ARTHRITIS
  6. LEFLUNOMIDE. [Concomitant]
     Active Substance: LEFLUNOMIDE
     Indication: RHEUMATOID ARTHRITIS
  7. FLUXOCEMIRA [Concomitant]
     Indication: RHEUMATOID ARTHRITIS

REACTIONS (5)
  - Intentional product misuse [Unknown]
  - Eye ulcer [Not Recovered/Not Resolved]
  - Asthenopia [Unknown]
  - Vision blurred [Unknown]
  - Dry eye [Unknown]

NARRATIVE: CASE EVENT DATE: 201912
